FAERS Safety Report 16629455 (Version 1)
Quarter: 2019Q3

REPORT INFORMATION
  Report Type: Spontaneous
  Country: FR (occurrence: FR)
  Receive Date: 20190725
  Receipt Date: 20190725
  Transmission Date: 20191004
  Serious: Yes (Hospitalization, Other)
  Sender: FDA-Public Use
  Company Number: FR-SA-2019SA199396

PATIENT

DRUGS (1)
  1. STILNOX [Suspect]
     Active Substance: ZOLPIDEM TARTRATE
     Dosage: 70 DF, TID, 210 TABLETS PER DAY (70 TABLETS TID).
     Route: 048

REACTIONS (4)
  - Overdose [Unknown]
  - Drug dependence [Unknown]
  - Toxicity to various agents [Unknown]
  - Drug level increased [Unknown]
